FAERS Safety Report 9353689 (Version 2)
Quarter: 2013Q3

REPORT INFORMATION
  Report Type: Spontaneous
  Country: JP (occurrence: JP)
  Receive Date: 20130618
  Receipt Date: 20130719
  Transmission Date: 20140515
  Serious: Yes (Other)
  Sender: FDA-Public Use
  Company Number: JP-PFIZER INC-2013178409

PATIENT
  Sex: 0

DRUGS (3)
  1. SODIUM CROMOGLICATE [Suspect]
     Indication: COUGH
     Dosage: UNK
     Route: 045
  2. PULMICORT [Concomitant]
     Indication: COUGH
     Dosage: UNK
  3. MEPTIN [Concomitant]
     Indication: COUGH
     Dosage: UNK

REACTIONS (1)
  - Pneumonia [Unknown]
